FAERS Safety Report 4690457-3 (Version None)
Quarter: 2005Q2

REPORT INFORMATION
  Report Type: 
  Country: None (occurrence: None)
  Receive Date: 20050615
  Receipt Date: 20050607
  Transmission Date: 20051028
  Serious: Yes (Disabling)
  Sender: FDA-Public Use
  Company Number: JP-BRISTOL-MYERS SQUIBB COMPANY-12998076

PATIENT
  Sex: Male

DRUGS (3)
  1. TAXOL [Suspect]
     Indication: LUNG ADENOCARCINOMA
     Route: 041
     Dates: start: 20050201
  2. PARAPLATIN [Suspect]
     Indication: LUNG ADENOCARCINOMA
     Route: 042
     Dates: start: 20050201
  3. NEORAL [Concomitant]
     Route: 048

REACTIONS (1)
  - MYOSITIS [None]
